FAERS Safety Report 7295125-X (Version None)
Quarter: 2011Q1

REPORT INFORMATION
  Report Type: 
  Country: None (occurrence: None)
  Receive Date: 20110216
  Receipt Date: 20110207
  Transmission Date: 20110831
  Serious: Yes (Other)
  Sender: FDA-Public Use
  Company Number: US-JNJFOC-20101002914

PATIENT
  Sex: Male
  Weight: 92.99 kg

DRUGS (4)
  1. ZYPREXA [Suspect]
     Indication: SCHIZOPHRENIA
     Route: 065
  2. RISPERDAL CONSTA [Suspect]
     Indication: SCHIZOPHRENIA
     Route: 030
  3. RISPERDAL CONSTA [Suspect]
     Dosage: NDC 050468-306
     Route: 030
  4. RISPERDAL CONSTA [Suspect]
     Route: 030

REACTIONS (11)
  - DYSPHAGIA [None]
  - ABNORMAL BEHAVIOUR [None]
  - DISSOCIATION [None]
  - MUSCULOSKELETAL DISORDER [None]
  - MUSCLE TWITCHING [None]
  - NECK PAIN [None]
  - MOVEMENT DISORDER [None]
  - TARDIVE DYSKINESIA [None]
  - GRIMACING [None]
  - TORTICOLLIS [None]
  - WEIGHT DECREASED [None]
